FAERS Safety Report 11654327 (Version 1)
Quarter: 2015Q4

REPORT INFORMATION
  Report Type: Spontaneous
  Country: US (occurrence: None)
  Receive Date: 20151022
  Receipt Date: 20151022
  Transmission Date: 20160304
  Serious: Yes (Disabling)
  Sender: FDA-Public Use
  Company Number: None

PATIENT
  Age: 59 Year
  Sex: Female
  Weight: 46.72 kg

DRUGS (1)
  1. LEVOFLOXACIN 500MG DR. REDDYS LAB [Suspect]
     Active Substance: LEVOFLOXACIN
     Indication: SINUSITIS
     Route: 048
     Dates: start: 20140508, end: 20140517

REACTIONS (12)
  - Anxiety [None]
  - Asthenia [None]
  - Decreased appetite [None]
  - Gait disturbance [None]
  - Depressed mood [None]
  - Palpitations [None]
  - Weight decreased [None]
  - Depression [None]
  - Pain in extremity [None]
  - Visual impairment [None]
  - Fall [None]
  - Quality of life decreased [None]
